FAERS Safety Report 10192131 (Version 2)
Quarter: 2014Q2

REPORT INFORMATION
  Report Type: Spontaneous
  Country: FR (occurrence: FR)
  Receive Date: 20140523
  Receipt Date: 20140604
  Transmission Date: 20141212
  Serious: Yes (Hospitalization)
  Sender: FDA-Public Use
  Company Number: FR-ASTRAZENECA-2014SE34662

PATIENT
  Age: 70 Year
  Sex: Female

DRUGS (4)
  1. KENZEN [Suspect]
     Indication: HYPERTENSION
     Route: 048
  2. KENZEN [Suspect]
     Indication: CARDIAC DISORDER
     Route: 048
  3. BETATOP [Suspect]
     Indication: HYPERTENSION
     Dosage: GENERIC
     Route: 065
  4. BETATOP [Suspect]
     Indication: CARDIAC DISORDER
     Dosage: GENERIC
     Route: 065

REACTIONS (3)
  - Upper limb fracture [Unknown]
  - Blood pressure increased [Unknown]
  - Heart rate increased [Unknown]
